FAERS Safety Report 4665971-7 (Version None)
Quarter: 2005Q2

REPORT INFORMATION
  Report Type: 
  Country: None (occurrence: None)
  Receive Date: 20050517
  Receipt Date: 20050517
  Transmission Date: 20051028
  Serious: Yes (Hospitalization)
  Sender: FDA-Public Use
  Company Number: None

PATIENT
  Age: 73 Year
  Sex: Female
  Weight: 55.3388 kg

DRUGS (4)
  1. OMNIPAQUE 180 [Suspect]
     Indication: SPINAL COLUMN STENOSIS
     Dosage: 10 ML  ONCE  INTRATHECA
     Route: 037
     Dates: start: 20050506, end: 20050506
  2. OMNIPAQUE 180 [Suspect]
     Indication: SPINAL MYELOGRAM
     Dosage: 10 ML  ONCE  INTRATHECA
     Route: 037
     Dates: start: 20050506, end: 20050506
  3. LIDOCAINE 1% [Suspect]
     Indication: SPINAL COLUMN STENOSIS
     Dosage: 10 ML   ONCE   INTRATHECA
     Route: 037
     Dates: start: 20050506, end: 20050506
  4. LIDOCAINE 1% [Suspect]
     Indication: SPINAL MYELOGRAM
     Dosage: 10 ML   ONCE   INTRATHECA
     Route: 037
     Dates: start: 20050506, end: 20050506

REACTIONS (5)
  - APHASIA [None]
  - BODY TEMPERATURE INCREASED [None]
  - HEADACHE [None]
  - MENINGITIS [None]
  - VOMITING [None]
